FAERS Safety Report 11840155 (Version 1)
Quarter: 2015Q4

REPORT INFORMATION
  Report Type: Spontaneous
  Country: GB (occurrence: GB)
  Receive Date: 20151216
  Receipt Date: 20151216
  Transmission Date: 20160305
  Serious: Yes (Other)
  Sender: FDA-Public Use
  Company Number: GB-ELI_LILLY_AND_COMPANY-GB201512004156

PATIENT
  Age: 45 Year
  Sex: Female
  Weight: 63 kg

DRUGS (5)
  1. QUETIAPINE [Concomitant]
     Active Substance: QUETIAPINE
     Indication: AFFECT LABILITY
     Dosage: 50 MG, UNKNOWN
     Route: 065
  2. ATOMOXETINE HYDROCHLORIDE. [Suspect]
     Active Substance: ATOMOXETINE HYDROCHLORIDE
     Indication: ATTENTION DEFICIT/HYPERACTIVITY DISORDER
     Dosage: 80 MG, UNK
     Route: 048
     Dates: start: 20151012, end: 20151117
  3. PREGABALIN. [Concomitant]
     Active Substance: PREGABALIN
     Indication: ANXIETY
     Dosage: 100 MG, UNKNOWN
     Route: 065
  4. PROPRANOLOL [Concomitant]
     Active Substance: PROPRANOLOL\PROPRANOLOL HYDROCHLORIDE
     Indication: ANXIETY
     Dosage: UNK UNK, UNKNOWN
     Route: 065
  5. MIRTAZAPINE. [Concomitant]
     Active Substance: MIRTAZAPINE
     Indication: DEPRESSION
     Dosage: 45 MG, UNKNOWN
     Route: 065

REACTIONS (2)
  - Suicidal ideation [Not Recovered/Not Resolved]
  - Depressed mood [Not Recovered/Not Resolved]

NARRATIVE: CASE EVENT DATE: 20151112
